FAERS Safety Report 12046458 (Version 2)
Quarter: 2016Q1

REPORT INFORMATION
  Report Type: Spontaneous
  Country: DE (occurrence: DE)
  Receive Date: 20160208
  Receipt Date: 20160215
  Transmission Date: 20160526
  Serious: Yes (Other)
  Sender: FDA-Public Use
  Company Number: DE-009507513-1602DEU004011

PATIENT
  Age: 16 Year
  Sex: Male

DRUGS (1)
  1. GRAZAX [Suspect]
     Active Substance: PHLEUM PRATENSE POLLEN
     Indication: RHINITIS ALLERGIC
     Dosage: 75000SQ-T, ORAL LYOPHILISATE
     Route: 048
     Dates: start: 20160121, end: 20160121

REACTIONS (6)
  - Paraesthesia oral [Unknown]
  - Throat irritation [Unknown]
  - Lacrimation increased [Unknown]
  - Pharyngeal paraesthesia [Recovered/Resolved]
  - Cough [Recovered/Resolved]
  - Swollen tongue [Unknown]

NARRATIVE: CASE EVENT DATE: 20160121
